FAERS Safety Report 4322384-5 (Version None)
Quarter: 2004Q1

REPORT INFORMATION
  Report Type: 
  Country: None (occurrence: None)
  Receive Date: 20040324
  Receipt Date: 20040317
  Transmission Date: 20041129
  Serious: Yes (Other)
  Sender: FDA-Public Use
  Company Number: PHBS2004NL03656

PATIENT
  Age: 69 Year
  Sex: Female

DRUGS (2)
  1. LAMISIL [Suspect]
     Indication: NAIL TINEA
     Dosage: 250 MG, UNK
     Route: 048
     Dates: start: 20040204, end: 20040304
  2. FURABID [Concomitant]
     Dosage: UNK, UNK
     Dates: start: 20040216, end: 20040221

REACTIONS (6)
  - ARTHRITIS [None]
  - ERYTHEMA [None]
  - HYPOKINESIA [None]
  - JOINT RANGE OF MOTION DECREASED [None]
  - JOINT STIFFNESS [None]
  - MALAISE [None]
